FAERS Safety Report 6973244-2 (Version None)
Quarter: 2010Q3

REPORT INFORMATION
  Report Type: 
  Country: None (occurrence: None)
  Receive Date: 20100909
  Receipt Date: 20100901
  Transmission Date: 20110219
  Serious: Yes (Other)
  Sender: FDA-Public Use
  Company Number: FR-ROCHE-725114

PATIENT
  Age: 45 Year
  Sex: Male

DRUGS (5)
  1. PEGASYS [Suspect]
     Indication: HEPATITIS C
     Dosage: OTHER INDICATION: POST-HEPATIC CIRRHOSIS
     Route: 065
     Dates: start: 20090101
  2. KALETRA [Concomitant]
     Indication: ANTIRETROVIRAL THERAPY
  3. TRANXENE [Concomitant]
     Indication: DEPRESSION
  4. EFFEXOR [Concomitant]
     Indication: DEPRESSION
  5. LEXOMIL [Concomitant]
     Indication: DEPRESSION

REACTIONS (5)
  - CATAPLEXY [None]
  - DISTURBANCE IN ATTENTION [None]
  - HYPERSOMNIA [None]
  - MEMORY IMPAIRMENT [None]
  - ROAD TRAFFIC ACCIDENT [None]
